FAERS Safety Report 13492337 (Version 1)
Quarter: 2017Q2

REPORT INFORMATION
  Report Type: Spontaneous
  Country: FR (occurrence: FR)
  Receive Date: 20170427
  Receipt Date: 20170427
  Transmission Date: 20170830
  Serious: Yes (Life-Threatening, Hospitalization, Other)
  Sender: FDA-Public Use
  Company Number: FR-INDIVIOR LIMITED-INDV-100686-2017

PATIENT
  Age: 28 Year
  Sex: Female

DRUGS (6)
  1. SUBUTEX [Suspect]
     Active Substance: BUPRENORPHINE HYDROCHLORIDE
     Indication: DRUG USE DISORDER
     Dosage: 4 DF, 1 IN 1 DAY
     Route: 042
  2. ZOPLICONE [Concomitant]
     Active Substance: ZOPICLONE
     Indication: PRODUCT USED FOR UNKNOWN INDICATION
     Dosage: 3.75 MG/ EVENING
     Route: 065
     Dates: start: 20170323
  3. MIRTAZAPINE. [Concomitant]
     Active Substance: MIRTAZAPINE
     Indication: PRODUCT USED FOR UNKNOWN INDICATION
     Dosage: 15 MG, QD
     Route: 065
     Dates: start: 20170323
  4. HYDROXYZINE [Concomitant]
     Active Substance: HYDROXYZINE HYDROCHLORIDE
     Indication: ANXIETY
     Dosage: 25 MG, PRN
     Route: 065
     Dates: start: 20170323
  5. HEROIN [Suspect]
     Active Substance: DIAMORPHINE
     Indication: PRODUCT USED FOR UNKNOWN INDICATION
     Dosage: UNK
     Route: 042
  6. OXAZEPAM. [Concomitant]
     Active Substance: OXAZEPAM
     Indication: PRODUCT USED FOR UNKNOWN INDICATION
     Dosage: 30 MG, QD
     Route: 065
     Dates: start: 20170323

REACTIONS (16)
  - Endocarditis staphylococcal [Recovered/Resolved with Sequelae]
  - Cardiac pacemaker insertion [Recovered/Resolved with Sequelae]
  - Splenic artery aneurysm [Recovered/Resolved with Sequelae]
  - Brain abscess [Unknown]
  - Splenic rupture [Unknown]
  - Renal embolism [Unknown]
  - Splenic embolism [Unknown]
  - Product use issue [Recovering/Resolving]
  - Drug use disorder [Unknown]
  - Heart valve replacement [Recovered/Resolved with Sequelae]
  - Intracranial aneurysm [Recovered/Resolved with Sequelae]
  - Hepatic embolisation [Unknown]
  - Shock haemorrhagic [Unknown]
  - Pancreatic disorder [Unknown]
  - Pulmonary embolism [Unknown]
  - Cerebral artery embolism [Unknown]

NARRATIVE: CASE EVENT DATE: 20170127
